FAERS Safety Report 7178264-3 (Version None)
Quarter: 2010Q4

REPORT INFORMATION
  Report Type: 
  Country: None (occurrence: None)
  Receive Date: 20101220
  Receipt Date: 20101215
  Transmission Date: 20110411
  Serious: Yes (Hospitalization)
  Sender: FDA-Public Use
  Company Number: CH-PFIZER INC-2010172432

PATIENT
  Age: 44 Year
  Sex: Male

DRUGS (4)
  1. ZOLOFT [Suspect]
     Dosage: 25 MG, 1X/DAY
     Route: 048
     Dates: end: 20100921
  2. BACLOFEN [Concomitant]
     Dosage: 50 MG, 2X/DAY
     Route: 048
  3. VALIUM [Concomitant]
     Dosage: 10 MG, 1X/DAY
  4. TEMESTA [Concomitant]
     Dosage: 1 MG, 1X/DAY
     Route: 048

REACTIONS (5)
  - CONFUSIONAL STATE [None]
  - MUSCLE CONTRACTIONS INVOLUNTARY [None]
  - PYREXIA [None]
  - RHABDOMYOLYSIS [None]
  - SEROTONIN SYNDROME [None]
